FAERS Safety Report 5321455-4 (Version None)
Quarter: 2007Q2

REPORT INFORMATION
  Report Type: 
  Country: None (occurrence: None)
  Receive Date: 20070510
  Receipt Date: 20070502
  Transmission Date: 20071010
  Serious: Yes (Other)
  Sender: FDA-Public Use
  Company Number: B0463295A

PATIENT
  Sex: Male

DRUGS (2)
  1. SEROXAT [Suspect]
     Route: 048
     Dates: start: 19990101
  2. SEROXAT [Suspect]
     Route: 048

REACTIONS (6)
  - AGGRESSION [None]
  - DEPRESSIVE SYMPTOM [None]
  - DIZZINESS [None]
  - DRUG WITHDRAWAL SYNDROME [None]
  - FEELING ABNORMAL [None]
  - PHYSICAL ASSAULT [None]
